FAERS Safety Report 15160550 (Version 1)
Quarter: 2018Q3

REPORT INFORMATION
  Report Type: Spontaneous
  Country: AR (occurrence: AR)
  Receive Date: 20180718
  Receipt Date: 20180718
  Transmission Date: 20181010
  Serious: Yes (Life-Threatening)
  Sender: FDA-Public Use
  Company Number: AR-FRESENIUS KABI-FK201807972

PATIENT
  Sex: Female

DRUGS (2)
  1. TRIAMCINOLONE [Suspect]
     Active Substance: TRIAMCINOLONE
     Indication: RADICULOPATHY
     Dosage: 1 ML OF 60 MG
     Route: 050
  2. BUPIVACAINE (MANUFACTURER UNKNOWN) [Suspect]
     Active Substance: BUPIVACAINE
     Indication: RADICULOPATHY
     Route: 050

REACTIONS (1)
  - Anaphylactic shock [Recovered/Resolved]
